FAERS Safety Report 8415965-0 (Version None)
Quarter: 2012Q2

REPORT INFORMATION
  Report Type: 
  Country: None (occurrence: None)
  Receive Date: 20120606
  Receipt Date: 20120604
  Transmission Date: 20120825
  Serious: Yes (Congenital Anomaly, Other)
  Sender: FDA-Public Use
  Company Number: US-PFIZER INC-2012133908

PATIENT
  Sex: Female

DRUGS (4)
  1. ZOLOFT [Suspect]
     Indication: DEPRESSION
     Dosage: UNK
     Route: 064
  2. ZOLOFT [Suspect]
     Indication: PROPHYLAXIS
  3. SERTRALINE HYDROCHLORIDE [Suspect]
     Indication: PROPHYLAXIS
  4. SERTRALINE HYDROCHLORIDE [Suspect]
     Indication: DEPRESSION
     Dosage: UNK
     Route: 064

REACTIONS (3)
  - HEART DISEASE CONGENITAL [None]
  - CONGENITAL CARDIOVASCULAR ANOMALY [None]
  - MATERNAL EXPOSURE DURING PREGNANCY [None]
